FAERS Safety Report 7700701-3 (Version None)
Quarter: 2011Q3

REPORT INFORMATION
  Report Type: 
  Country: None (occurrence: None)
  Receive Date: 20110817
  Receipt Date: 20110802
  Transmission Date: 20111222
  Serious: Yes (Hospitalization)
  Sender: FDA-Public Use
  Company Number: FK201101551

PATIENT
  Age: 76 Year
  Sex: Female

DRUGS (2)
  1. XELODA [Suspect]
     Indication: COLON CANCER
     Dates: start: 20060406, end: 20060712
  2. OXALIPLATIN [Suspect]
     Indication: COLON CANCER
     Dosage: 203 MG, INTRAVENOUS (NOT OTHERWISE SPECIFIED)
     Route: 042
     Dates: start: 20060406, end: 20060712

REACTIONS (12)
  - DIARRHOEA [None]
  - WEIGHT DECREASED [None]
  - INJURY [None]
  - TOOTH EROSION [None]
  - TOOTH LOSS [None]
  - NAUSEA [None]
  - NEUROPATHY PERIPHERAL [None]
  - METASTASES TO LIVER [None]
  - DENTAL CARIES [None]
  - MALAISE [None]
  - GENERAL PHYSICAL HEALTH DETERIORATION [None]
  - RENAL NEOPLASM [None]
